FAERS Safety Report 12568588 (Version 3)
Quarter: 2016Q3

REPORT INFORMATION
  Report Type: Spontaneous
  Country: GB (occurrence: GB)
  Receive Date: 20160719
  Receipt Date: 20160919
  Transmission Date: 20161109
  Serious: Yes (Other)
  Sender: FDA-Public Use
  Company Number: GB-BAYER-2016-135267

PATIENT
  Age: 44 Year
  Sex: Female

DRUGS (2)
  1. MIRENA [Suspect]
     Active Substance: LEVONORGESTREL
     Indication: CONTRACEPTION
     Dosage: 20 MCG/24HR, CONT
     Route: 015
     Dates: start: 2005
  2. MIRENA [Suspect]
     Active Substance: LEVONORGESTREL
     Indication: CONTRACEPTION
     Dosage: 20 MCG/24HR, CONT
     Route: 015
     Dates: end: 20160411

REACTIONS (44)
  - Muscular weakness [Not Recovered/Not Resolved]
  - Skin burning sensation [Not Recovered/Not Resolved]
  - Musculoskeletal stiffness [Not Recovered/Not Resolved]
  - Blindness unilateral [None]
  - Gastric infection [Recovering/Resolving]
  - Vision blurred [Recovered/Resolved]
  - Eye pain [Not Recovered/Not Resolved]
  - Muscle spasms [Unknown]
  - Dry throat [Not Recovered/Not Resolved]
  - Ear discomfort [Not Recovered/Not Resolved]
  - Tinnitus [Not Recovered/Not Resolved]
  - Visual acuity reduced [Not Recovered/Not Resolved]
  - Abdominal pain upper [Recovered/Resolved]
  - Vaginal odour [Not Recovered/Not Resolved]
  - Dry eye [Not Recovered/Not Resolved]
  - Photopsia [Not Recovered/Not Resolved]
  - Hangover [Unknown]
  - Lip swelling [Not Recovered/Not Resolved]
  - Visual impairment [Not Recovered/Not Resolved]
  - Anxiety [None]
  - Chromaturia [None]
  - Headache [Not Recovered/Not Resolved]
  - Breast pain [Recovered/Resolved]
  - Urticaria [Not Recovered/Not Resolved]
  - Coordination abnormal [None]
  - Feeling abnormal [None]
  - Palpitations [None]
  - Tremor [None]
  - Paraesthesia [None]
  - Vitreous floaters [Not Recovered/Not Resolved]
  - Headache [Recovering/Resolving]
  - Paraesthesia [Not Recovered/Not Resolved]
  - Pruritus [Not Recovered/Not Resolved]
  - Chemical poisoning [Not Recovered/Not Resolved]
  - Urinary tract infection [Recovered/Resolved]
  - Uterine infection [Recovered/Resolved]
  - Memory impairment [Not Recovered/Not Resolved]
  - Disturbance in attention [Not Recovered/Not Resolved]
  - Arthralgia [None]
  - Foreign body [None]
  - Limb discomfort [Not Recovered/Not Resolved]
  - Hypoaesthesia [Not Recovered/Not Resolved]
  - Alopecia [None]
  - Spinal disorder [None]

NARRATIVE: CASE EVENT DATE: 201409
